FAERS Safety Report 8624219-9 (Version None)
Quarter: 2012Q3

REPORT INFORMATION
  Report Type: 
  Country: None (occurrence: None)
  Receive Date: 20120827
  Receipt Date: 20120817
  Transmission Date: 20120928
  Serious: Yes (Hospitalization, Disabling, Other)
  Sender: FDA-Public Use
  Company Number: US-009507513-1103USA00941

PATIENT

DRUGS (9)
  1. FOSAMAX [Suspect]
     Dosage: 70 MG, UNK
     Route: 048
     Dates: start: 20090114, end: 20100101
  2. LEVOTHROID [Concomitant]
     Indication: HYPOTHYROIDISM
     Dates: start: 20040101
  3. SUCLOR [Concomitant]
     Indication: SEASONAL ALLERGY
     Dates: start: 20050101, end: 20080101
  4. CHLORPHENIRAMINE MALEATE (+) PSEUDOEPHEDRINE HYDROCHLORIDE [Concomitant]
     Indication: HYPERSENSITIVITY
  5. FOSAMAX PLUS D [Suspect]
     Indication: OSTEOPOROSIS
     Dosage: 70/2800
     Route: 048
     Dates: start: 20070322, end: 20091221
  6. FOSAMAX [Suspect]
     Indication: OSTEOPOROSIS
     Dosage: 70 MG, UNK
     Route: 048
     Dates: start: 20030425, end: 20070201
  7. CALCIUM (UNSPECIFIED) [Concomitant]
     Dosage: 750 MG, QD
     Dates: start: 20050101
  8. MK-9278 [Concomitant]
     Dosage: UNK UNK, QD
  9. HORMONES (UNSPECIFIED) [Concomitant]
     Dates: start: 20010101

REACTIONS (70)
  - FEMUR FRACTURE [None]
  - HERPES ZOSTER [None]
  - POLYARTHRITIS [None]
  - MUSCLE SPASMS [None]
  - FACIAL BONES FRACTURE [None]
  - INCISION SITE PAIN [None]
  - FIBROADENOMA OF BREAST [None]
  - BREAST COMPLICATION ASSOCIATED WITH DEVICE [None]
  - AGE-RELATED MACULAR DEGENERATION [None]
  - ARTHROPATHY [None]
  - GROIN PAIN [None]
  - LIMB ASYMMETRY [None]
  - BURSITIS [None]
  - NERVOUSNESS [None]
  - INTERVERTEBRAL DISC DEGENERATION [None]
  - NEPHROLITHIASIS [None]
  - URINARY TRACT INFECTION [None]
  - GOITRE [None]
  - CONSTIPATION [None]
  - ADVERSE DRUG REACTION [None]
  - VITAMIN D DEFICIENCY [None]
  - URINE CALCIUM [None]
  - INTRAOCULAR LENS IMPLANT [None]
  - VULVOVAGINAL MYCOTIC INFECTION [None]
  - DRUG INEFFECTIVE [None]
  - MYOFASCIAL PAIN SYNDROME [None]
  - MUSCLE STRAIN [None]
  - NASOPHARYNGITIS [None]
  - BLEPHARITIS [None]
  - VASCULAR INSUFFICIENCY [None]
  - NECK PAIN [None]
  - MUSCULOSKELETAL PAIN [None]
  - HYPERLIPIDAEMIA [None]
  - SOMNOLENCE [None]
  - CATARACT [None]
  - OEDEMA PERIPHERAL [None]
  - LOW TURNOVER OSTEOPATHY [None]
  - SUPRAVENTRICULAR EXTRASYSTOLES [None]
  - MYALGIA [None]
  - FALL [None]
  - ANXIETY [None]
  - CHOLELITHIASIS [None]
  - APPENDIX DISORDER [None]
  - ANAEMIA POSTOPERATIVE [None]
  - GASTROOESOPHAGEAL REFLUX DISEASE [None]
  - HIP FRACTURE [None]
  - BONE LOSS [None]
  - HAEMORRHAGE [None]
  - SCOLIOSIS [None]
  - ASTIGMATISM [None]
  - EPISTAXIS [None]
  - TONSILLAR DISORDER [None]
  - FRACTURE NONUNION [None]
  - MAJOR DEPRESSION [None]
  - TOOTH DISORDER [None]
  - SEASONAL ALLERGY [None]
  - PRESBYOPIA [None]
  - ABDOMINAL HERNIA [None]
  - INSOMNIA [None]
  - MUSCULAR WEAKNESS [None]
  - TINNITUS [None]
  - BUNION [None]
  - TOOTH FRACTURE [None]
  - SYNCOPE [None]
  - MIGRAINE [None]
  - INCREASED TENDENCY TO BRUISE [None]
  - ABDOMINAL DISCOMFORT [None]
  - BREAST CANCER [None]
  - ADVERSE EVENT [None]
  - GAIT DISTURBANCE [None]
